FAERS Safety Report 6795777-4 (Version None)
Quarter: 2010Q2

REPORT INFORMATION
  Report Type: 
  Country: None (occurrence: None)
  Receive Date: 20100625
  Receipt Date: 20100615
  Transmission Date: 20101027
  Serious: Yes (Hospitalization)
  Sender: FDA-Public Use
  Company Number: US-ABBOTT-10P-163-0652388-00

PATIENT
  Age: 23 Year
  Sex: Male

DRUGS (5)
  1. HUMIRA [Suspect]
     Indication: PSORIASIS
     Route: 058
     Dates: start: 20100501
  2. SYNTHROID [Concomitant]
     Indication: HYPOTHYROIDISM
     Route: 048
  3. TRAZODONE HCL [Concomitant]
     Indication: AUTISM
  4. ANAFRANIL [Concomitant]
     Indication: AUTISM
     Route: 048
  5. ABILIFY [Concomitant]
     Indication: AUTISM
     Route: 048

REACTIONS (2)
  - ARTHRITIS INFECTIVE [None]
  - JOINT SWELLING [None]
